FAERS Safety Report 26174664 (Version 1)
Quarter: 2025Q4

REPORT INFORMATION
  Report Type: Spontaneous
  Country: CA (occurrence: CA)
  Receive Date: 20251218
  Receipt Date: 20251218
  Transmission Date: 20260118
  Serious: Yes (Death)
  Sender: BAUSCH AND LOMB
  Company Number: CA-BAUSCH-BH-2025-022120

PATIENT
  Age: 85 Year
  Sex: Female

DRUGS (1)
  1. DEXAMETHASONE [Suspect]
     Active Substance: DEXAMETHASONE
     Indication: Product used for unknown indication
     Dosage: DOSAGE FORM: NOT SPECIFIED
     Route: 065

REACTIONS (24)
  - Acute pulmonary oedema [Fatal]
  - Altered state of consciousness [Fatal]
  - Arrhythmia [Fatal]
  - Blood pressure immeasurable [Fatal]
  - Blood pressure increased [Fatal]
  - Body temperature decreased [Fatal]
  - Cardiac failure [Fatal]
  - Dyspnoea [Fatal]
  - Fall [Fatal]
  - Haemoglobin decreased [Fatal]
  - Heart rate irregular [Fatal]
  - Hypervolaemia [Fatal]
  - Hypoxia [Fatal]
  - Internal haemorrhage [Fatal]
  - Malaise [Fatal]
  - Oxygen saturation decreased [Fatal]
  - Pulse abnormal [Fatal]
  - Respiratory distress [Fatal]
  - Respiratory rate decreased [Fatal]
  - Skin discolouration [Fatal]
  - Tachypnoea [Fatal]
  - Transfusion reaction [Fatal]
  - Transfusion-related acute lung injury [Fatal]
  - Unresponsive to stimuli [Fatal]
